FAERS Safety Report 7363170-1 (Version None)
Quarter: 2011Q1

REPORT INFORMATION
  Report Type: 
  Country: None (occurrence: None)
  Receive Date: 20110321
  Receipt Date: 20110228
  Transmission Date: 20110831
  Serious: Yes (Other)
  Sender: FDA-Public Use
  Company Number: US-BAYER-200936271NA

PATIENT
  Sex: Female
  Weight: 63 kg

DRUGS (1)
  1. TRASYLOL [Suspect]
     Indication: CORONARY ARTERY BYPASS
     Dosage: LOADING DOSE, 200 ML
     Route: 042
     Dates: start: 20040901

REACTIONS (8)
  - RENAL FAILURE [None]
  - ANXIETY [None]
  - UNEVALUABLE EVENT [None]
  - FEAR [None]
  - INJURY [None]
  - PAIN [None]
  - ANHEDONIA [None]
  - DEPRESSION [None]
